FAERS Safety Report 7481628-1 (Version None)
Quarter: 2011Q2

REPORT INFORMATION
  Report Type: 
  Country: None (occurrence: None)
  Receive Date: 20110516
  Receipt Date: 20110504
  Transmission Date: 20111010
  Serious: Yes (Other)
  Sender: FDA-Public Use
  Company Number: DE-ROCHE-775823

PATIENT
  Sex: Female

DRUGS (1)
  1. BONIVA [Suspect]
     Indication: OSTEOPOROSIS
     Dosage: FURTHER APPLICATIONS ON 12-NOV-2010 AND ON 11-FEB-2011
     Route: 042
     Dates: start: 20100812

REACTIONS (8)
  - ALOPECIA [None]
  - DYSPNOEA [None]
  - DRY MOUTH [None]
  - BONE MARROW DISORDER [None]
  - HEADACHE [None]
  - LYMPHADENOPATHY [None]
  - GROIN PAIN [None]
  - TREMOR [None]
